FAERS Safety Report 7899994-1 (Version None)
Quarter: 2011Q4

REPORT INFORMATION
  Report Type: 
  Country: None (occurrence: None)
  Receive Date: 20111107
  Receipt Date: 20111021
  Transmission Date: 20120403
  Serious: No
  Sender: FDA-Public Use
  Company Number: US-AMGEN-USASP2011046969

PATIENT
  Age: 70 Year
  Sex: Female
  Weight: 97.506 kg

DRUGS (1)
  1. ENBREL [Suspect]
     Indication: RHEUMATOID ARTHRITIS
     Dosage: 50 MG, QWK
     Dates: start: 20110915, end: 20111021

REACTIONS (6)
  - RHINORRHOEA [None]
  - LACRIMATION INCREASED [None]
  - BRONCHITIS [None]
  - FATIGUE [None]
  - PAIN [None]
  - RESPIRATORY TRACT INFECTION [None]
